FAERS Safety Report 24608203 (Version 2)
Quarter: 2025Q1

REPORT INFORMATION
  Report Type: Report from Study
  Country: US (occurrence: US)
  Receive Date: 20241112
  Receipt Date: 20250313
  Transmission Date: 20250409
  Serious: Yes (Other)
  Sender: EISAI
  Company Number: US-Eisai-EC-2024-178347

PATIENT
  Age: 76 Year
  Sex: Male
  Weight: 80.9 kg

DRUGS (23)
  1. LENVIMA [Suspect]
     Active Substance: LENVATINIB
     Indication: Renal cancer
     Dosage: STOPPED: AUG//2023
     Dates: start: 20230830
  2. LENVIMA [Suspect]
     Active Substance: LENVATINIB
     Dates: start: 20230902, end: 20230913
  3. LENVIMA [Suspect]
     Active Substance: LENVATINIB
     Dates: start: 2023, end: 2023
  4. LENVIMA [Suspect]
     Active Substance: LENVATINIB
     Dates: start: 202311, end: 2024
  5. LENVIMA [Suspect]
     Active Substance: LENVATINIB
     Dates: start: 2024, end: 2024
  6. LENVIMA [Suspect]
     Active Substance: LENVATINIB
     Dates: start: 2024, end: 202412
  7. LENVIMA [Suspect]
     Active Substance: LENVATINIB
     Dates: start: 20250218
  8. KEYTRUDA [Concomitant]
     Active Substance: PEMBROLIZUMAB
     Indication: Renal cancer
     Dates: end: 202412
  9. ONDANSETRON HYDROCHLORIDE [Concomitant]
     Active Substance: ONDANSETRON HYDROCHLORIDE
  10. FAMOTIDINE [Concomitant]
     Active Substance: FAMOTIDINE
  11. ROSUVASTATIN CALCIUM [Concomitant]
     Active Substance: ROSUVASTATIN CALCIUM
  12. TYLENOL [Concomitant]
     Active Substance: ACETAMINOPHEN
  13. BENAZEPRIL HYDROCHLORIDE [Concomitant]
     Active Substance: BENAZEPRIL HYDROCHLORIDE
  14. AMLODIPINE BESYLATE [Concomitant]
     Active Substance: AMLODIPINE BESYLATE
  15. PROCHLORPERAZINE [Concomitant]
     Active Substance: PROCHLORPERAZINE
  16. FISH OIL [Concomitant]
     Active Substance: FISH OIL
  17. GINGER [Concomitant]
     Active Substance: GINGER
  18. POTASSIUM CHLORIDE [Concomitant]
     Active Substance: POTASSIUM CHLORIDE
  19. PREDNISONE [Concomitant]
     Active Substance: PREDNISONE
  20. IMODIUM [Concomitant]
     Active Substance: LOPERAMIDE HYDROCHLORIDE
  21. MELATONIN [Concomitant]
     Active Substance: MELATONIN
  22. ASPIRIN [Concomitant]
     Active Substance: ASPIRIN
  23. CYCLOBENZAPRINE HYDROCHLORIDE [Concomitant]
     Active Substance: CYCLOBENZAPRINE HYDROCHLORIDE

REACTIONS (2)
  - Atrial fibrillation [Recovering/Resolving]
  - Thyroid disorder [Unknown]

NARRATIVE: CASE EVENT DATE: 20240901
